FAERS Safety Report 4870560-5 (Version None)
Quarter: 2005Q4

REPORT INFORMATION
  Report Type: 
  Country: None (occurrence: None)
  Receive Date: 20051228
  Receipt Date: 20051207
  Transmission Date: 20060501
  Serious: Yes (Life-Threatening)
  Sender: FDA-Public Use
  Company Number: 1314819-2005-00007

PATIENT

DRUGS (1)
  1. GLADASE PAPAIN-UREA DEBRIDING OINTMENT 8.3X10(5) USP UNITS OF ACTIVITY [Suspect]
     Dosage: 060

REACTIONS (2)
  - PHARMACEUTICAL PRODUCT COMPLAINT [None]
  - UNEVALUABLE EVENT [None]
